FAERS Safety Report 15746820 (Version 1)
Quarter: 2018Q4

REPORT INFORMATION
  Report Type: Spontaneous
  Country: DE (occurrence: DE)
  Receive Date: 20181220
  Receipt Date: 20181220
  Transmission Date: 20190205
  Serious: Yes (Other)
  Sender: FDA-Public Use
  Company Number: DE-TEVA-521101GER

PATIENT
  Age: 38 Year
  Sex: Female

DRUGS (3)
  1. CISPLATIN. [Suspect]
     Active Substance: CISPLATIN
     Indication: CHOLANGIOCARCINOMA
     Dosage: ON DAY 1 OF A 21-DAY CYCLE
  2. GEMCITABINE [Suspect]
     Active Substance: GEMCITABINE\GEMCITABINE HYDROCHLORIDE
     Indication: CHOLANGIOCARCINOMA
     Dosage: ON DAYS 1 AND 8 OF A 21-DAY CYCLE
  3. PACLITAXEL. [Suspect]
     Active Substance: PACLITAXEL
     Indication: CHOLANGIOCARCINOMA
     Route: 065

REACTIONS (5)
  - Maternal exposure during pregnancy [Unknown]
  - Malignant neoplasm progression [Unknown]
  - Polyneuropathy [Unknown]
  - Leukopenia [Unknown]
  - Normal newborn [Unknown]
